FAERS Safety Report 15169478 (Version 1)
Quarter: 2018Q3

REPORT INFORMATION
  Report Type: Spontaneous
  Country: ES (occurrence: ES)
  Receive Date: 20180720
  Receipt Date: 20180720
  Transmission Date: 20181010
  Serious: Yes (Other)
  Sender: FDA-Public Use
  Company Number: ES-ASTRAZENECA-2018SE90060

PATIENT

DRUGS (2)
  1. GEFITINIB. [Suspect]
     Active Substance: GEFITINIB
     Indication: NON-SMALL CELL LUNG CANCER
     Route: 048
     Dates: start: 2017
  2. GEMCITABINE [Suspect]
     Active Substance: GEMCITABINE\GEMCITABINE HYDROCHLORIDE
     Indication: NON-SMALL CELL LUNG CANCER
     Route: 065
     Dates: start: 2017

REACTIONS (6)
  - Off label use [Unknown]
  - Product use issue [Unknown]
  - Malignant neoplasm progression [Unknown]
  - Rash [Unknown]
  - Toxicity to various agents [Unknown]
  - Asthenia [Unknown]
